FAERS Safety Report 9280204 (Version 1)
Quarter: 2013Q2

REPORT INFORMATION
  Report Type: Spontaneous
  Country: US (occurrence: None)
  Receive Date: 20130507
  Receipt Date: 20130507
  Transmission Date: 20140414
  Serious: Yes (Hospitalization)
  Sender: FDA-Public Use
  Company Number: None

PATIENT
  Sex: Female
  Weight: 64.86 kg

DRUGS (1)
  1. XELODA [Suspect]
     Indication: ADENOCARCINOMA OF COLON
     Dosage: 4 X 500 MG 2 WEEKS AM ; 3 X 500 MG PM
     Route: 048

REACTIONS (4)
  - Dehydration [None]
  - Diarrhoea [None]
  - Vomiting [None]
  - Colitis [None]
